FAERS Safety Report 19681240 (Version 1)
Quarter: 2021Q3

REPORT INFORMATION
  Report Type: Spontaneous
  Country: US (occurrence: US)
  Receive Date: 20210810
  Receipt Date: 20210810
  Transmission Date: 20211014
  Serious: No
  Sender: FDA-Public Use
  Company Number: US-IGSA-BIG0011008

PATIENT
  Sex: Female

DRUGS (1)
  1. GAMUNEX?C [Suspect]
     Active Substance: HUMAN IMMUNOGLOBULIN G
     Indication: PRIMARY IMMUNODEFICIENCY SYNDROME
     Dosage: 10 GRAM, Q.WK.
     Route: 058

REACTIONS (6)
  - Skin fibrosis [Not Recovered/Not Resolved]
  - Scar [Not Recovered/Not Resolved]
  - Device dispensing error [Not Recovered/Not Resolved]
  - Haematoma [Not Recovered/Not Resolved]
  - Skin disorder [Not Recovered/Not Resolved]
  - Wrong technique in product usage process [Not Recovered/Not Resolved]
